FAERS Safety Report 23493455 (Version 2)
Quarter: 2024Q2

REPORT INFORMATION
  Report Type: Spontaneous
  Country: GB (occurrence: GB)
  Receive Date: 20240207
  Receipt Date: 20240403
  Transmission Date: 20240715
  Serious: Yes (Other)
  Sender: FDA-Public Use
  Company Number: GB-SA-SAC20240131001181

PATIENT
  Sex: Female

DRUGS (1)
  1. AUBAGIO [Suspect]
     Active Substance: TERIFLUNOMIDE
     Indication: Multiple sclerosis
     Dosage: UNK
     Route: 048
     Dates: start: 20240124, end: 20240127

REACTIONS (6)
  - Colitis [Recovered/Resolved]
  - Rectal haemorrhage [Recovered/Resolved]
  - Haematochezia [Recovered/Resolved]
  - Diarrhoea [Recovered/Resolved]
  - Abdominal pain [Recovered/Resolved]
  - Fatigue [Unknown]

NARRATIVE: CASE EVENT DATE: 20240127
